FAERS Safety Report 7351275-0 (Version None)
Quarter: 2011Q1

REPORT INFORMATION
  Report Type: 
  Country: None (occurrence: None)
  Receive Date: 20110314
  Receipt Date: 20110309
  Transmission Date: 20110831
  Serious: Yes (Other)
  Sender: FDA-Public Use
  Company Number: US-PFIZER INC-2011052446

PATIENT
  Sex: Female
  Weight: 100.68 kg

DRUGS (5)
  1. PRISTIQ [Concomitant]
     Dosage: UNK
  2. LYRICA [Suspect]
     Indication: NEUROPATHY PERIPHERAL
     Dosage: UNK
     Route: 048
  3. CYMBALTA [Concomitant]
     Dosage: 60 MG, 1X/DAY
     Route: 048
     Dates: start: 20100101, end: 20100101
  4. NEURONTIN [Suspect]
     Indication: NEUROPATHY PERIPHERAL
     Dosage: 300 MG, 2X/DAY
     Route: 048
     Dates: start: 20100101
  5. NEURONTIN [Suspect]
     Dosage: 600 MG, 1X/DAY

REACTIONS (5)
  - DRUG INEFFECTIVE [None]
  - PAIN IN EXTREMITY [None]
  - BLOOD POTASSIUM INCREASED [None]
  - OEDEMA [None]
  - HYPOKALAEMIA [None]
